FAERS Safety Report 18207119 (Version 1)
Quarter: 2020Q3

REPORT INFORMATION
  Report Type: Spontaneous
  Country: US (occurrence: US)
  Receive Date: 20200828
  Receipt Date: 20200828
  Transmission Date: 20201103
  Serious: Yes (Other)
  Sender: FDA-Public Use
  Company Number: US-ACELLA PHARMACEUTICALS, LLC-2089128

PATIENT
  Age: 63 Year
  Sex: Female

DRUGS (2)
  1. NP THYROID [Suspect]
     Active Substance: LEVOTHYROXINE\LIOTHYRONINE
     Indication: HYPOTHYROIDISM
     Route: 048
  2. LEVETIRACETAM. [Concomitant]
     Active Substance: LEVETIRACETAM
     Route: 065

REACTIONS (5)
  - Meniscus operation [Recovered/Resolved]
  - Knee operation [Recovered/Resolved]
  - Muscle spasms [Unknown]
  - Joint swelling [Unknown]
  - Meniscus injury [Unknown]

NARRATIVE: CASE EVENT DATE: 2019
